FAERS Safety Report 6179660-3 (Version None)
Quarter: 2009Q2

REPORT INFORMATION
  Report Type: 
  Country: None (occurrence: None)
  Receive Date: 20090505
  Receipt Date: 20090422
  Transmission Date: 20091009
  Serious: Yes (Other)
  Sender: FDA-Public Use
  Company Number: PHHY2009IL15247

PATIENT
  Age: 72 Year
  Sex: Male

DRUGS (3)
  1. PAMIDRONATE DISODIUM [Suspect]
     Dosage: UNK
     Route: 042
  2. ZOLEDRONIC ACID [Suspect]
     Dosage: UNK
  3. CLODRONATE DISODIUM [Suspect]
     Dosage: 1600 MG, QD
     Route: 048

REACTIONS (2)
  - BONE DISORDER [None]
  - OSTEONECROSIS [None]
